FAERS Safety Report 9457562 (Version 1)
Quarter: 2013Q3

REPORT INFORMATION
  Report Type: Spontaneous
  Country: US (occurrence: None)
  Receive Date: 20130809
  Receipt Date: 20130809
  Transmission Date: 20140515
  Serious: Yes (Other)
  Sender: FDA-Public Use
  Company Number: DSU-2013-04221

PATIENT
  Age: 74 Year
  Sex: Female
  Weight: 58.51 kg

DRUGS (1)
  1. BENICAR (OLMESARTAN MEDOXOMIL) (40 MILLIGRAM, TABLET) (OLMESARTAN MEDOXOMIL) [Suspect]
     Indication: HYPERTENSION
     Dosage: (40MG)
     Route: 048
     Dates: start: 2008, end: 201307

REACTIONS (8)
  - Breast cancer [None]
  - Pancreatitis [None]
  - Diarrhoea [None]
  - Dehydration [None]
  - Nausea [None]
  - Vomiting [None]
  - Large intestine polyp [None]
  - Abdominal adhesions [None]
